FAERS Safety Report 5372239-2 (Version None)
Quarter: 2007Q2

REPORT INFORMATION
  Report Type: 
  Country: None (occurrence: None)
  Receive Date: 20070627
  Receipt Date: 20070618
  Transmission Date: 20071010
  Serious: Yes (Other)
  Sender: FDA-Public Use
  Company Number: JP-ASTRAZENECA-2007AP02972

PATIENT
  Age: 57 Year
  Sex: Female
  Weight: 50 kg

DRUGS (9)
  1. CRESTOR [Suspect]
     Indication: TYPE IIA HYPERLIPIDAEMIA
     Route: 048
     Dates: start: 20070329, end: 20070405
  2. PENFILL 30R [Concomitant]
     Indication: DIABETES MELLITUS
     Route: 058
     Dates: start: 20040715
  3. TENORMIN [Concomitant]
     Indication: HYPERTENSION
     Route: 048
     Dates: start: 20041210
  4. BLOPRESS [Concomitant]
     Indication: HYPERTENSION
     Route: 048
     Dates: start: 20050210
  5. ATELEC [Concomitant]
     Indication: HYPERTENSION
     Route: 048
     Dates: start: 20050616
  6. BASEN OD [Concomitant]
     Indication: DIABETES MELLITUS
     Route: 048
     Dates: start: 20060511
  7. EPADEL S [Concomitant]
     Indication: TYPE IIA HYPERLIPIDAEMIA
     Route: 048
     Dates: start: 20060613
  8. CHOLEBRINE [Concomitant]
     Indication: TYPE IIA HYPERLIPIDAEMIA
     Route: 048
     Dates: start: 20060720
  9. LIPITOR [Concomitant]
     Dates: end: 20070328

REACTIONS (5)
  - ALANINE AMINOTRANSFERASE INCREASED [None]
  - ASPARTATE AMINOTRANSFERASE INCREASED [None]
  - LIVER DISORDER [None]
  - RENAL DISORDER [None]
  - RENAL FAILURE [None]
